FAERS Safety Report 6960959-5 (Version None)
Quarter: 2010Q3

REPORT INFORMATION
  Report Type: 
  Country: None (occurrence: None)
  Receive Date: 20100830
  Receipt Date: 20100817
  Transmission Date: 20110219
  Serious: Yes (Hospitalization)
  Sender: FDA-Public Use
  Company Number: 2009SP025227

PATIENT
  Age: 19 Year
  Sex: Female
  Weight: 77.1115 kg

DRUGS (2)
  1. NUVARING [Suspect]
     Indication: CONTRACEPTION
     Dosage: QM;VAG
     Route: 067
     Dates: start: 20070725, end: 20070914
  2. PROVERA [Concomitant]

REACTIONS (28)
  - ANOGENITAL WARTS [None]
  - ANXIETY [None]
  - ARTHRALGIA [None]
  - CERVICAL DYSPLASIA [None]
  - CHEST PAIN [None]
  - CYST [None]
  - DRUG DOSE OMISSION [None]
  - DRUG EXPOSURE DURING PREGNANCY [None]
  - FEELING ABNORMAL [None]
  - GOITRE [None]
  - HAEMOPTYSIS [None]
  - INTERNATIONAL NORMALISED RATIO INCREASED [None]
  - MENTAL STATUS CHANGES [None]
  - MUSCULOSKELETAL PAIN [None]
  - OEDEMA PERIPHERAL [None]
  - OSTEITIS [None]
  - OVARIAN CYST [None]
  - PAIN IN EXTREMITY [None]
  - PAPILLOMA VIRAL INFECTION [None]
  - PHARYNGITIS [None]
  - PLEURITIC PAIN [None]
  - PROTHROMBIN TIME PROLONGED [None]
  - PULMONARY EMBOLISM [None]
  - ROAD TRAFFIC ACCIDENT [None]
  - TACHYCARDIA [None]
  - TWIN PREGNANCY [None]
  - UPPER RESPIRATORY TRACT INFECTION [None]
  - VAGINAL INFECTION [None]
